FAERS Safety Report 6023041-X (Version None)
Quarter: 2008Q4

REPORT INFORMATION
  Report Type: 
  Country: None (occurrence: None)
  Receive Date: 20081230
  Receipt Date: 20080711
  Transmission Date: 20090506
  Serious: No
  Sender: FDA-Public Use
  Company Number: US-ABBOTT-08P-163-0461436-00

PATIENT
  Sex: Male
  Weight: 16.798 kg

DRUGS (2)
  1. OMNICEF [Suspect]
     Indication: PHARYNGITIS
     Route: 048
     Dates: start: 20080515, end: 20080516
  2. LANSOPRAZOLE [Suspect]
     Indication: DRUG USE FOR UNKNOWN INDICATION
     Dates: start: 20080602

REACTIONS (3)
  - PRURITUS [None]
  - RASH [None]
  - URTICARIA [None]
